FAERS Safety Report 8998521 (Version 2)
Quarter: 2013Q1

REPORT INFORMATION
  Report Type: Spontaneous
  Country: JP (occurrence: JP)
  Receive Date: 20130103
  Receipt Date: 20130212
  Transmission Date: 20140127
  Serious: Yes (Other)
  Sender: FDA-Public Use
  Company Number: JP-PFIZER INC-2013000319

PATIENT
  Age: 40 Year
  Sex: Female
  Weight: 84.6 kg

DRUGS (7)
  1. CELECOX [Suspect]
     Indication: RHEUMATOID ARTHRITIS
     Dosage: 100 MG, 1X/DAY
     Route: 048
     Dates: start: 20121123
  2. AZULFIDINE EN [Suspect]
     Indication: RHEUMATOID ARTHRITIS
     Dosage: 250 MG, 1X/DAY
     Route: 048
     Dates: start: 20090724
  3. ICROL [Suspect]
     Indication: GASTRITIS PROPHYLAXIS
     Dosage: 200 MG, UID/QD
     Route: 048
     Dates: start: 20121123
  4. ONON [Suspect]
     Indication: ASTHMA
     Dosage: 225 MG, 2X/DAY
     Route: 048
     Dates: start: 20090803
  5. EBASTEL [Suspect]
     Indication: ALLERGY PROPHYLAXIS
     Dosage: 10 MG, 1X/DAY
     Route: 048
     Dates: start: 20110216
  6. CDP-870 [Suspect]
     Indication: RHEUMATOID ARTHRITIS
     Dosage: 200 MG, 2X/WEEK
     Route: 065
     Dates: start: 20100318, end: 20121113
  7. MOHRUS L [Concomitant]
     Indication: RHEUMATOID ARTHRITIS
     Dosage: UNK
     Dates: start: 20121123

REACTIONS (3)
  - Abortion spontaneous [Recovered/Resolved]
  - Intentional drug misuse [Unknown]
  - Exposure during pregnancy [Unknown]
